FAERS Safety Report 8087367-0 (Version None)
Quarter: 2012Q1

REPORT INFORMATION
  Report Type: 
  Country: None (occurrence: None)
  Receive Date: 20120128
  Receipt Date: 20110511
  Transmission Date: 20120608
  Serious: No
  Sender: FDA-Public Use
  Company Number: US-ABBOTT-11P-163-0724195-00

PATIENT
  Sex: Female

DRUGS (3)
  1. HUMIRA [Suspect]
     Dates: start: 20100101
  2. UNKNOWN MEDICATION [Concomitant]
     Indication: PAIN
  3. HUMIRA [Suspect]
     Indication: CROHN'S DISEASE
     Dates: start: 20070101, end: 20100101

REACTIONS (8)
  - WRONG TECHNIQUE IN DRUG USAGE PROCESS [None]
  - CROHN'S DISEASE [None]
  - INCORRECT DOSE ADMINISTERED [None]
  - INJECTION SITE PAIN [None]
  - VOMITING [None]
  - ARTHRALGIA [None]
  - ABDOMINAL PAIN UPPER [None]
  - JOINT SWELLING [None]
